FAERS Safety Report 5168474-9 (Version None)
Quarter: 2006Q4

REPORT INFORMATION
  Report Type: 
  Country: None (occurrence: None)
  Receive Date: 20061201
  Receipt Date: 20060727
  Transmission Date: 20070319
  Serious: Yes (Hospitalization)
  Sender: FDA-Public Use
  Company Number: 2006083080

PATIENT
  Age: 53 Year
  Sex: Female
  Weight: 45.2 kg

DRUGS (7)
  1. SILDENAFIL CITRATE [Suspect]
     Indication: PULMONARY HYPERTENSION
     Dosage: 75 MG (25 MG, 3 IN 1 D), ORAL
     Route: 048
     Dates: start: 20020928
  2. EPOPROSTENOL SODIUM [Suspect]
     Indication: PULMONARY HYPERTENSION
     Dosage: 60 NG/KG/MIN, INTRAVENOUS
     Route: 042
     Dates: start: 20020815
  3. TRACLEER [Suspect]
     Indication: PULMONARY HYPERTENSION
     Dosage: 125 MG, ORAL
     Route: 048
     Dates: start: 20060408, end: 20060501
  4. WARFARIN SODIUM [Concomitant]
  5. OXYGEN [Concomitant]
  6. ALDACTONE [Concomitant]
  7. LASIX [Concomitant]

REACTIONS (7)
  - ABDOMINAL PAIN UPPER [None]
  - CONDITION AGGRAVATED [None]
  - CONSTIPATION [None]
  - NEUROPATHY PERIPHERAL [None]
  - OFF LABEL USE [None]
  - PULMONARY HYPERTENSION [None]
  - PULMONARY VEIN STENOSIS [None]
